FAERS Safety Report 4942936-9 (Version None)
Quarter: 2006Q1

REPORT INFORMATION
  Report Type: 
  Country: None (occurrence: None)
  Receive Date: 20060309
  Receipt Date: 20060223
  Transmission Date: 20060701
  Serious: Yes (Other)
  Sender: FDA-Public Use
  Company Number: 222500

PATIENT
  Age: 68 Year
  Sex: Male
  Weight: 69 kg

DRUGS (16)
  1. RITUXAN [Suspect]
     Indication: NON-HODGKIN'S LYMPHOMA
     Dosage: 660 MG, INTRAVENOUS
     Route: 042
     Dates: start: 20040929, end: 20041124
  2. CYCLOPHOSPHAMIDE [Suspect]
     Indication: NON-HODGKIN'S LYMPHOMA
     Dosage: 1310 MG, INTRAVENOUS
     Route: 042
     Dates: start: 20040908, end: 20050113
  3. DOXORUBICIN HCL [Suspect]
     Indication: NON-HODGKIN'S LYMPHOMA
     Dosage: 88 MG, INTRAVENOUS
     Route: 042
     Dates: start: 20040918, end: 20050113
  4. VINCRISTINE [Suspect]
     Indication: NON-HODGKIN'S LYMPHOMA
     Dosage: 2 MG, INTRAVENOUS
     Route: 042
     Dates: start: 20040908, end: 20050113
  5. PREDNISOLONE [Suspect]
     Indication: NON-HODGKIN'S LYMPHOMA
     Dosage: INTRAVENOUS
     Route: 042
     Dates: start: 20040908, end: 20050113
  6. BRUFEN (IBUPROFEN) [Concomitant]
  7. POLARAMINE [Concomitant]
  8. METHOTREXATE [Concomitant]
  9. CYTARABINE [Concomitant]
  10. PREDONINE (PREDNISOLONE, PREDNISOLONE ACETATE, PREDNISOLONE SODIUM SUC [Concomitant]
  11. NORVASC [Concomitant]
  12. LISINOPRIL [Concomitant]
  13. TENORMIN [Concomitant]
  14. ALLOPURINOL [Concomitant]
  15. FAMOTIDINE [Concomitant]
  16. CARDENE [Concomitant]

REACTIONS (5)
  - GASTRITIS [None]
  - HYPOAESTHESIA [None]
  - NASOPHARYNGITIS [None]
  - NEUTROPHIL COUNT DECREASED [None]
  - WHITE BLOOD CELL COUNT DECREASED [None]
